FAERS Safety Report 4759598-6 (Version None)
Quarter: 2005Q3

REPORT INFORMATION
  Report Type: 
  Country: None (occurrence: None)
  Receive Date: 20050901
  Receipt Date: 20050311
  Transmission Date: 20060218
  Serious: Yes (Hospitalization)
  Sender: FDA-Public Use
  Company Number: US-MERCK-0503USA02696

PATIENT
  Age: 51 Year
  Sex: Male
  Weight: 91 kg

DRUGS (8)
  1. VIOXX [Suspect]
     Indication: POLYARTHRITIS
     Route: 048
     Dates: start: 20010701, end: 20020202
  2. ZYRTEC [Concomitant]
     Route: 065
  3. NASACORT [Concomitant]
     Route: 065
  4. [THERAPY UNSPECIFIED] [Concomitant]
     Route: 065
  5. MOTRIN [Concomitant]
     Route: 048
     Dates: start: 20000101, end: 20010101
  6. CIPROFLOXACIN HCL [Concomitant]
     Route: 065
  7. DIFLUCAN [Concomitant]
     Route: 065
  8. NAPROXEN [Concomitant]
     Route: 048
     Dates: start: 20001211

REACTIONS (5)
  - CEREBROVASCULAR ACCIDENT [None]
  - DIPLOPIA [None]
  - HYPERTENSION [None]
  - SIALOADENITIS [None]
  - VERTIGO [None]
